FAERS Safety Report 12934475 (Version 2)
Quarter: 2016Q4

REPORT INFORMATION
  Report Type: Spontaneous
  Country: IT (occurrence: IT)
  Receive Date: 20161111
  Receipt Date: 20161222
  Transmission Date: 20170207
  Serious: Yes (Other)
  Sender: FDA-Public Use
  Company Number: IT-ELI_LILLY_AND_COMPANY-IT201610001612

PATIENT
  Age: 40 Year
  Sex: Female

DRUGS (1)
  1. CYMBALTA [Suspect]
     Active Substance: DULOXETINE HYDROCHLORIDE
     Indication: DEPRESSION
     Dosage: 30 MG, UNKNOWN
     Route: 065

REACTIONS (6)
  - Drug interaction [Unknown]
  - Eye irritation [Unknown]
  - Organising pneumonia [Unknown]
  - Abdominal discomfort [Unknown]
  - Oral discomfort [Unknown]
  - Vulvovaginal burning sensation [Unknown]
